FAERS Safety Report 7288762-X (Version None)
Quarter: 2011Q1

REPORT INFORMATION
  Report Type: 
  Country: None (occurrence: None)
  Receive Date: 20110211
  Receipt Date: 20110203
  Transmission Date: 20110831
  Serious: Yes (Hospitalization, Other)
  Sender: FDA-Public Use
  Company Number: US-B.I. PHARMACEUTICALS,INC./RIDGEFIELD-2011-BP-02001BP

PATIENT
  Sex: Female
  Weight: 63.05 kg

DRUGS (10)
  1. HUMIRA [Suspect]
     Dates: start: 20100801
  2. CLOPIDOGREL [Concomitant]
  3. LABETALOL [Concomitant]
  4. HUMIRA [Suspect]
     Indication: PSORIATIC ARTHROPATHY
     Dates: start: 20080901, end: 20081201
  5. CALCIUM [Concomitant]
  6. MOBIC [Suspect]
     Indication: PAIN
     Route: 065
     Dates: start: 20081201, end: 20090201
  7. SIMVASTATIN [Concomitant]
  8. HUMIRA [Suspect]
     Dates: start: 20090301, end: 20100401
  9. ACETYLSALICYLIC ACID [Concomitant]
  10. MULTI-VITAMIN [Concomitant]

REACTIONS (2)
  - CEREBROVASCULAR ACCIDENT [None]
  - VISUAL IMPAIRMENT [None]
